FAERS Safety Report 15934991 (Version 2)
Quarter: 2019Q2

REPORT INFORMATION
  Report Type: Report from Study
  Country: US (occurrence: US)
  Receive Date: 20190207
  Receipt Date: 20190529
  Transmission Date: 20190711
  Serious: Yes (Hospitalization)
  Sender: FDA-Public Use
  Company Number: PHHY2019US028597

PATIENT
  Age: 79 Year
  Sex: Male

DRUGS (4)
  1. AMLODIPINE [Concomitant]
     Active Substance: AMLODIPINE BESYLATE
     Indication: PRODUCT USED FOR UNKNOWN INDICATION
     Dosage: UNK
     Route: 065
     Dates: end: 20181120
  2. ALDACTONE [Concomitant]
     Active Substance: SPIRONOLACTONE
     Indication: OEDEMA PERIPHERAL
     Dosage: 25 MG, BID
     Route: 048
     Dates: start: 20181023, end: 20181207
  3. LASIX [Concomitant]
     Active Substance: FUROSEMIDE
     Indication: OEDEMA PERIPHERAL
     Dosage: 40 MG, QD
     Route: 048
     Dates: start: 20181015, end: 20181207
  4. AFINITOR [Suspect]
     Active Substance: EVEROLIMUS
     Indication: RENAL CELL CARCINOMA
     Dosage: 7.5 MG, QD
     Route: 048
     Dates: start: 20180829, end: 20181206

REACTIONS (7)
  - Acute kidney injury [Recovering/Resolving]
  - Hyperuricaemia [Unknown]
  - Urine output decreased [Unknown]
  - Fall [Unknown]
  - Hypotension [Unknown]
  - Dizziness [Unknown]
  - Skin laceration [Unknown]

NARRATIVE: CASE EVENT DATE: 20181207
